FAERS Safety Report 17908442 (Version 2)
Quarter: 2020Q4

REPORT INFORMATION
  Report Type: Spontaneous
  Country: CA (occurrence: CA)
  Receive Date: 20200617
  Receipt Date: 20201026
  Transmission Date: 20210113
  Serious: Yes (Other)
  Sender: FDA-Public Use
  Company Number: CA-AMERICAN REGENT INC-2020001251

PATIENT
  Age: 15 Year
  Sex: Female

DRUGS (1)
  1. VENOFER [Suspect]
     Active Substance: IRON SUCROSE
     Indication: PRODUCT USED FOR UNKNOWN INDICATION
     Dosage: 300 MILLIGRAM 1 IN EVERY 1 WEEKS
     Route: 042

REACTIONS (7)
  - Pyrexia [Unknown]
  - Dyspnoea [Recovered/Resolved]
  - Headache [Unknown]
  - Tachycardia [Unknown]
  - Pain in extremity [Unknown]
  - Maternal drugs affecting foetus [Unknown]
  - Back pain [Unknown]

NARRATIVE: CASE EVENT DATE: 20200207
